FAERS Safety Report 5472592-5 (Version None)
Quarter: 2007Q3

REPORT INFORMATION
  Report Type: 
  Country: None (occurrence: None)
  Receive Date: 20070926
  Receipt Date: 20070910
  Transmission Date: 20080115
  Serious: Yes (Life-Threatening, Hospitalization)
  Sender: FDA-Public Use
  Company Number: DSA_30612_2007

PATIENT
  Age: 22 Year
  Sex: Female

DRUGS (4)
  1. LORAZEPAM [Suspect]
     Dosage: 10 MG 1X NOT THE PRESCRIBED AMOUNT ORAL
     Route: 048
     Dates: start: 20070910, end: 20070910
  2. DOMINAL (DOMINAL - PROTHIPENDYL HYDROCHLORIDE) 40 MG [Suspect]
     Dosage: 2000 MG 1X NOT THE PRESCRIBED AMOUNT ORAL
     Route: 048
     Dates: start: 20070910, end: 20070910
  3. FLUPENTIXOL (FLUPENTIXOL) 10 ML [Suspect]
     Dosage: 500 MG 1X NOT THE PRESCRIBED AMOUNT ORAL
     Route: 048
     Dates: start: 20070910, end: 20070910
  4. FLUOXETINE HYDROCHLORIDE [Suspect]
     Dosage: 1000 MG 1X NOT THE PRESCRIBED AMOUNT ORAL
     Route: 048
     Dates: start: 20070910, end: 20070910

REACTIONS (4)
  - MULTIPLE DRUG OVERDOSE [None]
  - SOMNOLENCE [None]
  - SUICIDE ATTEMPT [None]
  - TACHYCARDIA [None]
